FAERS Safety Report 5817513-8 (Version None)
Quarter: 2008Q3

REPORT INFORMATION
  Report Type: 
  Country: None (occurrence: None)
  Receive Date: 20080722
  Receipt Date: 20080714
  Transmission Date: 20090109
  Serious: Yes (Hospitalization)
  Sender: FDA-Public Use
  Company Number: DE-AMGEN-UK294601

PATIENT
  Sex: Female

DRUGS (4)
  1. NEUPOGEN [Suspect]
     Indication: DRUG USE FOR UNKNOWN INDICATION
  2. TAXOTERE [Suspect]
     Route: 042
     Dates: start: 20071227, end: 20071227
  3. DOXORUBICIN HCL [Suspect]
     Route: 042
     Dates: start: 20071227, end: 20071227
  4. CYCLOPHOSPHAMIDE [Concomitant]
     Route: 042
     Dates: start: 20071227, end: 20071227

REACTIONS (3)
  - ANAEMIA [None]
  - CARDIAC FAILURE [None]
  - LEUKOPENIA [None]
